FAERS Safety Report 23918670 (Version 3)
Quarter: 2024Q3

REPORT INFORMATION
  Report Type: Spontaneous
  Country: JP (occurrence: JP)
  Receive Date: 20240530
  Receipt Date: 20240913
  Transmission Date: 20241016
  Serious: No
  Sender: ARGENX BVBA
  Company Number: JP-ARGENX-2024-ARGX-JP003389AA

PATIENT

DRUGS (2)
  1. EFGARTIGIMOD ALFA [Suspect]
     Active Substance: EFGARTIGIMOD ALFA
     Indication: Immune thrombocytopenia
     Dosage: UNK
     Route: 042
     Dates: start: 20240510
  2. EFGARTIGIMOD ALFA [Suspect]
     Active Substance: EFGARTIGIMOD ALFA
     Dosage: UNK UNK, 1/WEEK
     Route: 042
     Dates: start: 20240722

REACTIONS (3)
  - Epistaxis [Recovered/Resolved]
  - Product administered to patient of inappropriate age [Unknown]
  - Product dose omission issue [Unknown]

NARRATIVE: CASE EVENT DATE: 20240510
